FAERS Safety Report 7588798-5 (Version None)
Quarter: 2011Q3

REPORT INFORMATION
  Report Type: 
  Country: None (occurrence: None)
  Receive Date: 20110705
  Receipt Date: 20110620
  Transmission Date: 20111222
  Serious: Yes (Hospitalization, Other)
  Sender: FDA-Public Use
  Company Number: CA-BAYER-2011-024724

PATIENT
  Age: 54 Year
  Sex: Female

DRUGS (7)
  1. REMODULIN [Suspect]
     Dosage: UNK
     Route: 048
  2. ADVIL LIQUI-GELS [Concomitant]
  3. ACETAMINOPHEN [Concomitant]
  4. ASPIRIN [Suspect]
     Route: 065
  5. SILDENAFIL CITRATE [Suspect]
     Indication: PULMONARY HYPERTENSION
     Dosage: DAILY DOSE 3 DF
     Route: 065
     Dates: start: 20071201
  6. TRACLEER [Suspect]
     Indication: PULMONARY HYPERTENSION
     Route: 065
  7. DIGOXIN [Suspect]
     Route: 065

REACTIONS (5)
  - DELIRIUM [None]
  - RENAL FAILURE [None]
  - OEDEMA [None]
  - BLINDNESS [None]
  - PHOTOPHOBIA [None]
